FAERS Safety Report 12459977 (Version 1)
Quarter: 2016Q2

REPORT INFORMATION
  Report Type: Spontaneous
  Country: US (occurrence: US)
  Receive Date: 20160613
  Receipt Date: 20160613
  Transmission Date: 20160815
  Serious: No
  Sender: FDA-Public Use
  Company Number: US-PFIZER INC-2016266241

PATIENT
  Age: 74 Year
  Sex: Female

DRUGS (2)
  1. PREMARIN [Suspect]
     Active Substance: ESTROGENS, CONJUGATED
     Indication: ARTHRITIS
     Dosage: 0.3 MG, ALTERNATE DAY
     Route: 048
  2. PREMARIN [Suspect]
     Active Substance: ESTROGENS, CONJUGATED
     Indication: OSTEOPOROSIS
     Dosage: 0.3 MG, DAILY; HALF OF 0.6MG DAILY
     Route: 048

REACTIONS (4)
  - Therapeutic response unexpected [Unknown]
  - Energy increased [Unknown]
  - Intentional product misuse [Unknown]
  - Wrong technique in product usage process [Unknown]
